FAERS Safety Report 5521723-7 (Version None)
Quarter: 2007Q4

REPORT INFORMATION
  Report Type: 
  Country: None (occurrence: None)
  Receive Date: 20071120
  Receipt Date: 20071113
  Transmission Date: 20080405
  Serious: Yes (Hospitalization, Other)
  Sender: FDA-Public Use
  Company Number: PHMT2007CA00988

PATIENT
  Age: 51 Year
  Sex: Female
  Weight: 81.632 kg

DRUGS (3)
  1. ZELNORM [Suspect]
     Indication: IRRITABLE BOWEL SYNDROME
     Dosage: 6 MG, BID
     Route: 048
     Dates: start: 20041019, end: 20070307
  2. ANTIHYPERTENSIVE DRUGS [Concomitant]
     Indication: HYPERTENSION
  3. CHOLESTEROL- AND TRIGLYCERIDE REDUCERS [Concomitant]

REACTIONS (3)
  - CHEST DISCOMFORT [None]
  - DYSPEPSIA [None]
  - MYOCARDIAL INFARCTION [None]
